FAERS Safety Report 19591548 (Version 2)
Quarter: 2021Q3

REPORT INFORMATION
  Report Type: Spontaneous
  Country: DE (occurrence: DE)
  Receive Date: 20210721
  Receipt Date: 20210810
  Transmission Date: 20211014
  Serious: Yes (Hospitalization)
  Sender: FDA-Public Use
  Company Number: NVSC2021DE157022

PATIENT
  Age: 9 Year
  Sex: Female
  Weight: 26 kg

DRUGS (5)
  1. NAPROXEN. [Concomitant]
     Active Substance: NAPROXEN
     Indication: JUVENILE IDIOPATHIC ARTHRITIS
     Dosage: 100 MG, QD
     Route: 048
     Dates: start: 20210514, end: 20210710
  2. ENBREL [Suspect]
     Active Substance: ETANERCEPT
     Indication: JUVENILE IDIOPATHIC ARTHRITIS
     Dosage: 25 MG QW
     Route: 058
     Dates: start: 20210625, end: 20210702
  3. ENBREL [Suspect]
     Active Substance: ETANERCEPT
     Dosage: 25 MG QW
     Route: 058
     Dates: start: 202107
  4. MTX HEXAL [Suspect]
     Active Substance: METHOTREXATE SODIUM
     Dosage: 10 MG QW
     Route: 048
     Dates: start: 202107
  5. MTX HEXAL [Suspect]
     Active Substance: METHOTREXATE SODIUM
     Indication: JUVENILE IDIOPATHIC ARTHRITIS
     Dosage: 10 MG, QW
     Route: 048
     Dates: start: 20210514, end: 20210702

REACTIONS (2)
  - Abdominal pain [Recovered/Resolved]
  - Appendicitis [Recovered/Resolved]

NARRATIVE: CASE EVENT DATE: 20210708
